FAERS Safety Report 6286137-3 (Version None)
Quarter: 2009Q3

REPORT INFORMATION
  Report Type: 
  Country: None (occurrence: None)
  Receive Date: 20090728
  Receipt Date: 20090721
  Transmission Date: 20100115
  Serious: Yes (Death)
  Sender: FDA-Public Use
  Company Number: EG-ROCHE-645051

PATIENT
  Age: 54 Year
  Sex: Male

DRUGS (2)
  1. PEG-INTERFERON ALFA 2A (RO 25-8310) [Suspect]
     Route: 058
     Dates: start: 20090301, end: 20090701
  2. RIBAVIRIN [Suspect]
     Route: 048
     Dates: start: 20090301, end: 20090701

REACTIONS (1)
  - PANCREATIC CARCINOMA [None]
